FAERS Safety Report 7441473-X (Version None)
Quarter: 2011Q2

REPORT INFORMATION
  Report Type: 
  Country: None (occurrence: None)
  Receive Date: 20110428
  Receipt Date: 20110421
  Transmission Date: 20111010
  Serious: Yes (Death)
  Sender: FDA-Public Use
  Company Number: GB-ASTELLAS-2011US001770

PATIENT
  Age: 54 Year
  Sex: Male

DRUGS (7)
  1. HYDROCORTISONE [Concomitant]
     Indication: ACUTE MYELOID LEUKAEMIA RECURRENT
     Dosage: 12.5 MG, 3XWEEKLY
     Route: 037
  2. IDARUBICIN HCL [Concomitant]
     Indication: ACUTE MYELOID LEUKAEMIA RECURRENT
     Dosage: UNK
     Route: 065
  3. ETOPOSIDE [Concomitant]
     Indication: ACUTE MYELOID LEUKAEMIA RECURRENT
     Dosage: UNK
     Route: 065
  4. AMBISOME [Suspect]
     Indication: ANTIFUNGAL TREATMENT
     Dosage: UNK
     Route: 065
     Dates: start: 20070101
  5. METHOTREXATE [Concomitant]
     Indication: ACUTE MYELOID LEUKAEMIA RECURRENT
     Dosage: 12.5 MG, 3XWEEKLY
     Route: 037
  6. CYTARABINE [Concomitant]
     Indication: ACUTE MYELOID LEUKAEMIA RECURRENT
     Dosage: 30 MG, 3XWEEKLY
     Route: 037
  7. CYTARABINE [Concomitant]
     Dosage: UNK
     Route: 065

REACTIONS (2)
  - DRUG INEFFECTIVE [None]
  - SEPTIC SHOCK [None]
